FAERS Safety Report 5145987-7 (Version None)
Quarter: 2006Q4

REPORT INFORMATION
  Report Type: 
  Country: None (occurrence: None)
  Receive Date: 20061106
  Receipt Date: 20061106
  Transmission Date: 20070319
  Serious: Yes (Hospitalization)
  Sender: FDA-Public Use
  Company Number: None

PATIENT
  Age: 68 Year
  Sex: Male
  Weight: 94.8 kg

DRUGS (1)
  1. ALIMTA [Suspect]
     Indication: NON-SMALL CELL LUNG CANCER
     Dosage: 500 MG/M2, IV Q3W
     Route: 042
     Dates: start: 20061006

REACTIONS (4)
  - ANAEMIA [None]
  - HYPOGLYCAEMIA [None]
  - ORAL INTAKE REDUCED [None]
  - SOCIAL PROBLEM [None]
